FAERS Safety Report 7965114 (Version 6)
Quarter: 2014Q1

REPORT INFORMATION
  Report Type: Report from Study
  Country: DE (occurrence: DE)
  Receive Date: 20110527
  Receipt Date: 20140220
  Transmission Date: 20141002
  Serious: Yes (Hospitalization)
  Sender: FDA-Public Use
  Company Number: DE-UCBSA-032815

PATIENT
  Sex: Female
  Weight: 72 kg

DRUGS (13)
  1. CERTOLIZUMAB PEGOL [Suspect]
     Indication: RHEUMATOID ARTHRITIS
     Dosage: NO OF DOSES RECEIVED: 3X2 READY TO USE SYRINGE
     Route: 058
     Dates: start: 20110223, end: 20110404
  2. DECORTIN [Concomitant]
     Indication: RHEUMATOID ARTHRITIS
     Dates: start: 2006, end: 20110404
  3. ENBREL [Concomitant]
     Indication: RHEUMATOID ARTHRITIS
     Dates: start: 200909, end: 201102
  4. OMEPRAZOL [Concomitant]
     Indication: GASTRITIS
     Dates: start: 2006
  5. PROVAS [Concomitant]
     Indication: HYPERTENSION
     Dates: start: 201011
  6. AMLODIPIN [Concomitant]
     Indication: HYPERTENSION
     Dates: start: 201006, end: 201104
  7. DEKRISTOL [Concomitant]
     Indication: OSTEOPOROSIS PROPHYLAXIS
     Dosage: DOSE: 20,000 IE; FREQ: BIM
     Dates: start: 201011
  8. BISOPROLOL [Concomitant]
     Indication: HYPERTENSION
     Dates: start: 201011, end: 201104
  9. L-THYROX [Concomitant]
     Indication: GOITRE
     Dates: start: 2006
  10. SIMVABETA [Concomitant]
     Indication: HYPERLIPIDAEMIA
     Dates: start: 2006
  11. MARCUMAR [Concomitant]
     Indication: PULMONARY EMBOLISM
     Dosage: DOSE: ACCORDING TO QUICK^S
     Dates: start: 2004
  12. PARACETAMOL [Concomitant]
     Indication: SPONDYLOARTHROPATHY
     Dates: start: 201005
  13. MIRTAZAPIN [Concomitant]
     Indication: DEPRESSION
     Dates: start: 201009, end: 201104

REACTIONS (1)
  - Rash [Recovered/Resolved]
